FAERS Safety Report 6391406-2 (Version None)
Quarter: 2009Q4

REPORT INFORMATION
  Report Type: 
  Country: None (occurrence: None)
  Receive Date: 20091005
  Receipt Date: 20090921
  Transmission Date: 20100525
  Serious: No
  Sender: FDA-Public Use
  Company Number: US-1169995

PATIENT
  Sex: Female

DRUGS (5)
  1. TOBRADEX [Suspect]
     Indication: POSTOPERATIVE CARE
     Dosage: (EVERY 4-6 HOURS OPHTHALMIC)
     Route: 047
     Dates: start: 20090601
  2. SINGULAIR [Concomitant]
  3. RYNATAN [Concomitant]
  4. MICARDIS [Concomitant]
  5. ACIPHEX [Concomitant]

REACTIONS (8)
  - BLINDNESS [None]
  - BLISTER [None]
  - CONTUSION [None]
  - EYE SWELLING [None]
  - HEADACHE [None]
  - HYPERSENSITIVITY [None]
  - IMPAIRED DRIVING ABILITY [None]
  - VISION BLURRED [None]
